FAERS Safety Report 15630189 (Version 2)
Quarter: 2018Q4

REPORT INFORMATION
  Report Type: Spontaneous
  Country: US (occurrence: US)
  Receive Date: 20181118
  Receipt Date: 20181118
  Transmission Date: 20190205
  Serious: Yes (Congenital Anomaly, Other)
  Sender: FDA-Public Use
  Company Number: PHHY2009US16281

PATIENT

DRUGS (10)
  1. LEFLUNOMIDE. [Suspect]
     Active Substance: LEFLUNOMIDE
     Indication: FOETAL EXPOSURE DURING PREGNANCY
     Route: 064
  2. DEMEROL [Concomitant]
     Active Substance: MEPERIDINE HYDROCHLORIDE
     Indication: FOETAL EXPOSURE DURING PREGNANCY
     Route: 064
  3. CYCLOBENZAPRINE. [Concomitant]
     Active Substance: CYCLOBENZAPRINE
     Indication: FOETAL EXPOSURE DURING PREGNANCY
     Route: 064
  4. LEVOFLOXACIN. [Suspect]
     Active Substance: LEVOFLOXACIN
     Indication: FOETAL EXPOSURE DURING PREGNANCY
     Route: 064
  5. PROPOXYPHENE. [Concomitant]
     Active Substance: PROPOXYPHENE
     Indication: FOETAL EXPOSURE DURING PREGNANCY
     Route: 064
  6. IBUPROFEN. [Concomitant]
     Active Substance: IBUPROFEN
     Indication: FOETAL EXPOSURE DURING PREGNANCY
     Route: 064
  7. PREDNISONE. [Suspect]
     Active Substance: PREDNISONE
     Indication: FOETAL EXPOSURE DURING PREGNANCY
     Route: 064
  8. HYDROCHLOROTHIAZIDE. [Suspect]
     Active Substance: HYDROCHLOROTHIAZIDE
     Indication: FOETAL EXPOSURE DURING PREGNANCY
     Route: 064
  9. ETANERCEPT [Suspect]
     Active Substance: ETANERCEPT
     Indication: FOETAL EXPOSURE DURING PREGNANCY
     Route: 064
  10. CARISOPRODOL. [Concomitant]
     Active Substance: CARISOPRODOL
     Indication: FOETAL EXPOSURE DURING PREGNANCY
     Route: 064

REACTIONS (3)
  - Single functional kidney [Unknown]
  - Congenital renal cyst [Unknown]
  - Foetal exposure during pregnancy [Unknown]
